FAERS Safety Report 23251693 (Version 1)
Quarter: 2023Q4

REPORT INFORMATION
  Report Type: Spontaneous
  Country: US (occurrence: None)
  Receive Date: 20231201
  Receipt Date: 20231201
  Transmission Date: 20240110
  Serious: Yes (Other)
  Sender: FDA-Public Use
  Company Number: None

PATIENT
  Age: 29 Year
  Sex: Female
  Weight: 67.05 kg

DRUGS (9)
  1. HYLENEX RECOMBINANT [Suspect]
     Active Substance: HYALURONIDASE (HUMAN RECOMBINANT)
     Indication: Off label use
     Dates: start: 20230516, end: 20230606
  2. VITAMIN B12 [Concomitant]
     Active Substance: CYANOCOBALAMIN
  3. QUERCETIN [Concomitant]
     Active Substance: QUERCETIN
  4. bromeline [Concomitant]
  5. lisposomal [Concomitant]
  6. VITAMIN C [Concomitant]
     Active Substance: ASCORBIC ACID
  7. mfhr [Concomitant]
  8. FOLATE [Concomitant]
  9. serapeptase [Concomitant]

REACTIONS (9)
  - Skin laxity [None]
  - Skin tightness [None]
  - Facial paralysis [None]
  - Skin texture abnormal [None]
  - Injection related reaction [None]
  - Suicidal behaviour [None]
  - Product preparation issue [None]
  - Dry skin [None]
  - Autophobia [None]
